FAERS Safety Report 25715265 (Version 1)
Quarter: 2025Q3

REPORT INFORMATION
  Report Type: Spontaneous
  Country: GB (occurrence: GB)
  Receive Date: 20250822
  Receipt Date: 20250822
  Transmission Date: 20251020
  Serious: Yes (Death, Life-Threatening, Other)
  Sender: ACCORD
  Company Number: None

PATIENT

DRUGS (2)
  1. APIXABAN [Suspect]
     Active Substance: APIXABAN
     Indication: Product used for unknown indication
  2. ANDEXANET ALFA [Suspect]
     Active Substance: ANDEXANET ALFA
     Indication: Product used for unknown indication

REACTIONS (7)
  - Acute myocardial infarction [Fatal]
  - Cerebral mass effect [Not Recovered/Not Resolved]
  - Hypertension [Fatal]
  - Intraventricular haemorrhage [Not Recovered/Not Resolved]
  - Brain oedema [Not Recovered/Not Resolved]
  - Cerebral haemorrhage [Fatal]
  - Pulmonary embolism [Fatal]
